FAERS Safety Report 8567761-1 (Version None)
Quarter: 2012Q3

REPORT INFORMATION
  Report Type: 
  Country: None (occurrence: None)
  Receive Date: 20120803
  Receipt Date: 20120723
  Transmission Date: 20120928
  Serious: No
  Sender: FDA-Public Use
  Company Number: US-009507513-1207USA011124

PATIENT

DRUGS (3)
  1. LIPITOR [Suspect]
     Dosage: 20 MG, QD
     Route: 048
  2. ZOCOR [Suspect]
     Route: 048
  3. ATORVASTATIN CALCIUM [Suspect]
     Dosage: UNK

REACTIONS (3)
  - CONTUSION [None]
  - MUCOSAL EXFOLIATION [None]
  - ABDOMINAL PAIN [None]
